FAERS Safety Report 4968143-1 (Version None)
Quarter: 2006Q2

REPORT INFORMATION
  Report Type: 
  Country: None (occurrence: None)
  Receive Date: 20060410
  Receipt Date: 20030717
  Transmission Date: 20061013
  Serious: Yes (Other)
  Sender: FDA-Public Use
  Company Number: PHNU2003DE02746

PATIENT
  Age: 61 Year
  Sex: Female

DRUGS (9)
  1. DIGITALIS [Concomitant]
  2. DIOVAN [Suspect]
     Dosage: 0.5 DF, QD
     Route: 048
     Dates: start: 19970101, end: 20021101
  3. DIOVAN [Suspect]
     Dosage: 40 MG, QD
     Route: 048
     Dates: start: 20021101, end: 20021101
  4. DIOVAN [Suspect]
     Dosage: 40 MG, BID
     Dates: start: 20021101, end: 20060301
  5. DIOVAN [Suspect]
     Dosage: 80 MG, BID
     Dates: start: 20060301
  6. MARCUMAR [Suspect]
     Dosage: LOW DOSAGE
  7. EUTHYROX [Suspect]
     Dosage: LOW DOSAGE
  8. PIRETANIDE [Suspect]
     Dosage: LOW DOSAGE
  9. STILLACOR [Suspect]
     Dosage: LOW DOSAGE

REACTIONS (24)
  - ALOPECIA [None]
  - ANAEMIA [None]
  - ANTINUCLEAR ANTIBODY POSITIVE [None]
  - APHTHOUS STOMATITIS [None]
  - BLOOD PRESSURE INCREASED [None]
  - CHROMATURIA [None]
  - CYSTITIS [None]
  - DIARRHOEA [None]
  - ERYTHEMA [None]
  - EYE IRRITATION [None]
  - HAEMOGLOBIN DECREASED [None]
  - HYPERHIDROSIS [None]
  - LEUKOCYTOCLASTIC VASCULITIS [None]
  - LEUKOPENIA [None]
  - LYMPHOPENIA [None]
  - OESOPHAGEAL PAIN [None]
  - PRURITUS [None]
  - RASH [None]
  - RED BLOOD CELL COUNT DECREASED [None]
  - RENAL IMPAIRMENT [None]
  - SENSATION OF FOREIGN BODY [None]
  - SJOGREN'S SYNDROME [None]
  - SKIN BURNING SENSATION [None]
  - THROMBOCYTOPENIC PURPURA [None]
